FAERS Safety Report 7801534-X (Version None)
Quarter: 2011Q4

REPORT INFORMATION
  Report Type: 
  Country: None (occurrence: None)
  Receive Date: 20111007
  Receipt Date: 20110929
  Transmission Date: 20120403
  Serious: Yes (Other)
  Sender: FDA-Public Use
  Company Number: JP-JNJFOC-20111000781

PATIENT
  Age: 86 Year
  Sex: Female

DRUGS (2)
  1. TRIAZOLAM [Suspect]
     Indication: PRODUCT USED FOR UNKNOWN INDICATION
     Route: 065
     Dates: start: 20110926
  2. RISPERDAL [Suspect]
     Indication: PRODUCT USED FOR UNKNOWN INDICATION
     Route: 048
     Dates: start: 20110926

REACTIONS (2)
  - DEPRESSED LEVEL OF CONSCIOUSNESS [None]
  - RENAL IMPAIRMENT [None]
